FAERS Safety Report 5621278-2 (Version None)
Quarter: 2008Q1

REPORT INFORMATION
  Report Type: 
  Country: None (occurrence: None)
  Receive Date: 20080211
  Receipt Date: 20080131
  Transmission Date: 20080703
  Serious: Yes (Death)
  Sender: FDA-Public Use
  Company Number: US-JNJFOC-20080200447

PATIENT
  Sex: Male
  Weight: 74.84 kg

DRUGS (3)
  1. DURAGESIC-100 [Suspect]
     Dosage: 3 X 100 MCG PATCHES
     Route: 062
  2. DURAGESIC-100 [Suspect]
     Dosage: 2 X 100 MCG PATCHES
     Route: 062
  3. DURAGESIC-100 [Suspect]
     Indication: MULTIPLE MYELOMA
     Route: 062

REACTIONS (3)
  - MULTIPLE MYELOMA [None]
  - PAIN [None]
  - WEIGHT DECREASED [None]
